FAERS Safety Report 7394286-1 (Version None)
Quarter: 2011Q2

REPORT INFORMATION
  Report Type: 
  Country: None (occurrence: None)
  Receive Date: 20110405
  Receipt Date: 20110331
  Transmission Date: 20111010
  Serious: Yes (Death, Life-Threatening, Hospitalization)
  Sender: FDA-Public Use
  Company Number: US-ROCHE-533039

PATIENT
  Sex: Female
  Weight: 45.3 kg

DRUGS (14)
  1. OXYCODONE [Concomitant]
     Route: 048
     Dates: start: 20060726
  2. GUAIFENESIN [Concomitant]
     Dosage: DRUG NAME REPORTED AS GUAIFENESIN WITH CODEINE
     Route: 048
     Dates: start: 20070719
  3. CODEINE PHOSPHATE/GUAIFENESIN [Concomitant]
     Dates: start: 20070719
  4. BEVACIZUMAB [Suspect]
     Indication: BREAST CANCER
     Dosage: 10 MG/KG, DAYS 1+AMP;15, 460 MG DAILY
     Route: 042
     Dates: start: 20070629, end: 20070921
  5. PLAVIX [Concomitant]
     Route: 048
     Dates: start: 20010101
  6. BENADRYL [Concomitant]
     Route: 048
     Dates: start: 20070713
  7. FOLIC ACID [Concomitant]
     Route: 048
     Dates: start: 20010101
  8. CIMETIDINE [Concomitant]
     Indication: PROPHYLAXIS
     Route: 048
     Dates: start: 20010101
  9. IMDUR [Concomitant]
     Indication: PROPHYLAXIS
     Route: 048
     Dates: start: 20010101
  10. TOPROL-XL [Concomitant]
     Indication: HYPERTENSION
     Route: 048
     Dates: start: 20010101
  11. PACLITAXEL [Suspect]
     Indication: BREAST CANCER
     Dosage: 90 MG/M2, DAYS1,8,15, 135 MG DAILY
     Route: 042
     Dates: start: 20070629, end: 20070921
  12. CADUET [Concomitant]
     Indication: HYPERTENSION
     Dosage: OTHER INDICATION: CARDIAC FAILURE
     Route: 048
     Dates: start: 20060323
  13. CADUET [Concomitant]
     Route: 048
     Dates: start: 20060823
  14. MEGACE [Concomitant]
     Route: 048
     Dates: start: 20070824

REACTIONS (2)
  - PNEUMONITIS [None]
  - SEPTIC SHOCK [None]
